FAERS Safety Report 13554914 (Version 1)
Quarter: 2017Q2

REPORT INFORMATION
  Report Type: Spontaneous
  Country: US (occurrence: US)
  Receive Date: 20170517
  Receipt Date: 20170517
  Transmission Date: 20170830
  Serious: Yes (Hospitalization)
  Sender: FDA-Public Use
  Company Number: US-PFIZER INC-2015053699

PATIENT
  Age: 49 Year
  Sex: Male
  Weight: 121.5 kg

DRUGS (32)
  1. LYRICA [Suspect]
     Active Substance: PREGABALIN
     Indication: NEURALGIA
     Dosage: 300 MG, 2X/DAY
  2. NASONEX [Concomitant]
     Active Substance: MOMETASONE FUROATE
     Dosage: 50 MCG/SPRAY 1 SPRAY EACH NOSTRIL DAILY
     Route: 045
  3. LYRICA [Suspect]
     Active Substance: PREGABALIN
     Dosage: 150 MG, 3X/DAY
     Route: 048
     Dates: start: 201502
  4. PREDNISONE. [Concomitant]
     Active Substance: PREDNISONE
     Dosage: 8 MG, 1X/DAY (SLOW TAPER)
  5. ZYRTEC [Concomitant]
     Active Substance: CETIRIZINE HYDROCHLORIDE
     Dosage: 10 MG, DAILY
  6. PROMETHAZINE [Concomitant]
     Active Substance: PROMETHAZINE\PROMETHAZINE HYDROCHLORIDE
     Dosage: 12.5 MG, BEFORE EACH MEAL AND AT BEDTIME AS NEEDED (25 MG TAB-1/2)
  7. XOPENEX HFA [Concomitant]
     Active Substance: LEVALBUTEROL TARTRATE
     Dosage: 2 DF, AS NEEDED 45 MCG/ACTUATION AEROSOL- 2 PUFFS )
  8. LYRICA [Suspect]
     Active Substance: PREGABALIN
     Dosage: 150 MG, 4X/DAY
  9. IMURAN [Concomitant]
     Active Substance: AZATHIOPRINE
     Dosage: 100 MG, 1X/DAY
  10. COLCRYS [Concomitant]
     Active Substance: COLCHICINE
     Dosage: 0.6 MG, DAILY
  11. MIRAPEX [Concomitant]
     Active Substance: PRAMIPEXOLE DIHYDROCHLORIDE
     Dosage: 2 TABS OF 0.25 2 HR BEFORE SLEEP
  12. SYMBICORT [Concomitant]
     Active Substance: BUDESONIDE\FORMOTEROL FUMARATE DIHYDRATE
     Dosage: 2 PUFFS, 1X/DAY [BUDESONIDE:80]/[FORMOTEROL FUMARATE:4.5]
  13. NICOTINE. [Concomitant]
     Active Substance: NICOTINE
     Dosage: 21 MG, DAILY (21MG/24HR PATCH)
     Route: 061
  14. AMBIEN [Concomitant]
     Active Substance: ZOLPIDEM TARTRATE
     Dosage: 10 MG, AS NEEDED (1 DAILY)
  15. PROMETHAZINE [Concomitant]
     Active Substance: PROMETHAZINE\PROMETHAZINE HYDROCHLORIDE
     Dosage: WHEN CAN^T EAT (12.5MG/0.25 ML SSLO)
  16. K-DUR [Concomitant]
     Active Substance: POTASSIUM CHLORIDE
     Dosage: 20 MEQ, 1X/DAY
  17. BACLOFEN. [Concomitant]
     Active Substance: BACLOFEN
     Dosage: 20 MG, 3X/DAY
  18. LEVALBUTEROL HCL [Concomitant]
     Active Substance: LEVALBUTEROL HYDROCHLORIDE
     Dosage: 1.25MG/3ML, 3X/DAY
  19. ZOLOFT [Concomitant]
     Active Substance: SERTRALINE HYDROCHLORIDE
     Dosage: 150 MG, DAILY (1.5 DAILY TO EQUAL 150 MG)
  20. XANAX [Concomitant]
     Active Substance: ALPRAZOLAM
     Dosage: 1 MG, 3X/DAY
  21. TESSALON [Concomitant]
     Active Substance: BENZONATATE
     Dosage: 100 MG, AS NEEDED (UP TO 3X DAILY)
  22. PROBIOTIC [Concomitant]
     Active Substance: PROBIOTICS NOS
     Dosage: 1 DF, DAILY [BACILLUS COAGULANS: 75 MG]/[FRUCTOOLIGOSACCHARIDES: 500MG]
  23. VITAMIN D3 [Concomitant]
     Active Substance: CHOLECALCIFEROL
     Dosage: 5000 IU, DAILY
  24. BETAMETHASONE. [Concomitant]
     Active Substance: BETAMETHASONE
     Dosage: UNK UNK, AS NEEDED
     Route: 061
  25. PRILOSEC [Concomitant]
     Active Substance: OMEPRAZOLE MAGNESIUM
     Dosage: 40 MG, 1X/DAY
  26. NORCO [Concomitant]
     Active Substance: ACETAMINOPHEN\HYDROCODONE BITARTRATE
     Dosage: EVERY 4 TO 6 HRS PRN  [HYDROCODONE BITARTRATE 10MG]/[PARACETAMO 325MG]
  27. RESTORIL [Concomitant]
     Active Substance: TEMAZEPAM
     Dosage: 30 MG, AS NEEDED (1 DAILY)
  28. BACTRIM [Concomitant]
     Active Substance: SULFAMETHOXAZOLE\TRIMETHOPRIM
     Dosage: 1 DF, DAILY [SULFAMETHOXAZOLE 400MG]/[TRIMETHOPRIM 80 MG]
  29. MAGNESIUM OXIDE. [Concomitant]
     Active Substance: MAGNESIUM OXIDE
     Dosage: 400 MG, 1X/DAY
  30. PROTOPIC [Concomitant]
     Active Substance: TACROLIMUS
     Dosage: UNK UNK, AS NEEDED
     Route: 061
  31. CLOBEX [Concomitant]
     Active Substance: CLOBETASOL PROPIONATE
     Dosage: UNK UNK, AS NEEDED
  32. DESONIDE. [Concomitant]
     Active Substance: DESONIDE
     Dosage: UNK UNK, AS NEEDED
     Route: 061

REACTIONS (5)
  - Cervical spinal stenosis [Not Recovered/Not Resolved]
  - Vertebral foraminal stenosis [Not Recovered/Not Resolved]
  - Spinal column stenosis [Not Recovered/Not Resolved]
  - Post procedural complication [Unknown]
  - Hypokinesia [Unknown]
